FAERS Safety Report 7967794-X (Version None)
Quarter: 2011Q4

REPORT INFORMATION
  Report Type: 
  Country: None (occurrence: None)
  Receive Date: 20111208
  Receipt Date: 20111208
  Transmission Date: 20120403
  Serious: Yes (Life-Threatening, Hospitalization)
  Sender: FDA-Public Use
  Company Number: None

PATIENT
  Sex: Male

DRUGS (4)
  1. METHOTREXATE [Suspect]
     Dosage: M-62MG IV
     Route: 042
     Dates: start: 20111006
  2. DOXORUBICIN HCL [Suspect]
     Dosage: D-30MG IV
     Route: 042
  3. VINBLASTINE SULFATE [Suspect]
     Dosage: V-6MG IV
     Dates: start: 20111006
  4. CISPLATIN [Suspect]
     Dosage: C-72MG IV
     Route: 042

REACTIONS (8)
  - DUODENAL ULCER HAEMORRHAGE [None]
  - PYREXIA [None]
  - PSEUDOMONAS INFECTION [None]
  - PSEUDOMONAL SEPSIS [None]
  - TOXICITY TO VARIOUS AGENTS [None]
  - PLATELET COUNT DECREASED [None]
  - RENAL FAILURE ACUTE [None]
  - MYOCARDIAL INFARCTION [None]
